FAERS Safety Report 17858164 (Version 5)
Quarter: 2023Q4

REPORT INFORMATION
  Report Type: Report from Study
  Country: AU (occurrence: None)
  Receive Date: 20200604
  Receipt Date: 20231208
  Transmission Date: 20240110
  Serious: Yes (Hospitalization)
  Sender: FDA-Public Use
  Company Number: AU-ROCHE-2597302

PATIENT
  Age: 75 Year
  Sex: Female

DRUGS (14)
  1. BEVACIZUMAB [Suspect]
     Active Substance: BEVACIZUMAB
     Indication: Ovarian cancer
     Dosage: ON 01/APR/2020, MOST RECENT DOSE GIVEN, LAST DOSE PRIOR TO SAE: 13/MAY/2020
     Route: 042
     Dates: start: 20200108
  2. BEVACIZUMAB [Suspect]
     Active Substance: BEVACIZUMAB
     Route: 042
     Dates: start: 20200513
  3. ATEZOLIZUMAB [Suspect]
     Active Substance: ATEZOLIZUMAB
     Indication: Ovarian cancer
     Dosage: ON 15/APR/2020, MOST RECENT DOSE GIVEN, LAST DOSE PRIOR TO SAE: 13/MAY/2020
     Route: 041
     Dates: start: 20200205
  4. ATEZOLIZUMAB [Suspect]
     Active Substance: ATEZOLIZUMAB
     Route: 041
     Dates: start: 20200513
  5. COBIMETINIB [Suspect]
     Active Substance: COBIMETINIB
     Indication: Ovarian cancer
     Dosage: ON 21/APR/2020, THE MOST RECENT DOSE GIVEN 20 MG, LAST DOSE PRIOR TO SAE: 17/MAY/2020
     Route: 065
     Dates: start: 20200108
  6. COBIMETINIB [Suspect]
     Active Substance: COBIMETINIB
     Route: 065
     Dates: start: 20200522
  7. ROSUVASTATIN [Concomitant]
     Active Substance: ROSUVASTATIN
     Indication: Hyperlipidaemia
     Route: 048
     Dates: start: 2017
  8. VITAMIN C [Concomitant]
     Active Substance: ASCORBIC ACID
     Indication: Osteoporosis
     Route: 048
     Dates: start: 2016
  9. ESCITALOPRAM [Concomitant]
     Active Substance: ESCITALOPRAM OXALATE
     Indication: Depression
     Route: 048
     Dates: start: 2018
  10. CHOLECALCIFEROL [Concomitant]
     Active Substance: CHOLECALCIFEROL
  11. MAGNESIUM ASPARTATE [Concomitant]
     Active Substance: MAGNESIUM ASPARTATE
  12. ACETAMINOPHEN [Concomitant]
     Active Substance: ACETAMINOPHEN
  13. PERINDOPRIL ARGININE [Concomitant]
     Active Substance: PERINDOPRIL ARGININE
  14. PROCHLORPERAZINE [Concomitant]
     Active Substance: PROCHLORPERAZINE

REACTIONS (2)
  - Hypertension [Recovered/Resolved]
  - Vertigo [Recovered/Resolved]

NARRATIVE: CASE EVENT DATE: 20200427
